FAERS Safety Report 8901142 (Version 1)
Quarter: 2012Q4

REPORT INFORMATION
  Report Type: Report from Study
  Country: FR (occurrence: FR)
  Receive Date: 20121109
  Receipt Date: 20121109
  Transmission Date: 20130627
  Serious: Yes (Life-Threatening, Hospitalization)
  Sender: FDA-Public Use
  Company Number: FR-ROCHE-1153900

PATIENT
  Age: 65 Year
  Sex: Female

DRUGS (1)
  1. BEVACIZUMAB [Suspect]
     Indication: BREAST CANCER METASTATIC
     Route: 065

REACTIONS (2)
  - Cardiac failure [Unknown]
  - Cardiac arrest [Recovered/Resolved]
